FAERS Safety Report 8946825 (Version 1)
Quarter: 2012Q4

REPORT INFORMATION
  Report Type: 
  Country: US (occurrence: US)
  Receive Date: 20121204
  Receipt Date: 20121204
  Transmission Date: 20130627
  Serious: No
  Sender: FDA-Public Use
  Company Number: US-AMGEN-USASP2012071578

PATIENT
  Age: 49 Year
  Sex: Female

DRUGS (3)
  1. ENBREL [Suspect]
     Indication: RHEUMATOID ARTHRITIS
     Dosage: 50 mg, qwk
     Dates: start: 20120709
  2. PLAQUENIL                          /00072602/ [Concomitant]
     Dosage: UNK
     Dates: start: 2009
  3. METHOTREXATE [Concomitant]
     Dosage: 0.6 ml, qwk
     Route: 058
     Dates: start: 2010

REACTIONS (1)
  - Vertigo [Not Recovered/Not Resolved]
